FAERS Safety Report 8615126 (Version 2)
Quarter: 2014Q1

REPORT INFORMATION
  Report Type: Spontaneous
  Country: US (occurrence: None)
  Receive Date: 20120323
  Receipt Date: 20130305
  Transmission Date: 20141002
  Serious: Yes (Hospitalization)
  Sender: FDA-Public Use
  Company Number: 163-21880-11121806

PATIENT
  Age: 61 Year
  Sex: Male

DRUGS (15)
  1. REVLIMID [Suspect]
     Indication: MYELODYSPLASTIC SYNDROME
     Dosage: 10 MG, DAILY X 21 DAYS ON, 7 DAYS OFF, PO
     Route: 048
     Dates: start: 201110, end: 20111124
  2. RANEXA (RANOLAZINE) [Concomitant]
  3. CATAPRES (CLONIDINE) [Concomitant]
  4. DOXAZOSIN [Concomitant]
  5. VICODIN [Concomitant]
  6. LEXAPRO (ESCITALOPRAM OXALATE) [Concomitant]
  7. EFFEXOR (VENLAFAXINE HYDROCHLORIDE) [Concomitant]
  8. POTASSIUM [Concomitant]
  9. LORAZEPAM [Concomitant]
  10. AMBIEN (ZOLPIDEM TARTRATE) [Concomitant]
  11. ASPIRIN (ACETYLSALICYLIC ACID) [Concomitant]
  12. EFFIENT (PRASUGREL HYDROCHLORIDE) [Concomitant]
  13. LIPITOR (ATORVASTATIN) [Concomitant]
  14. LOPRESSOR (METOPROLOL TARTRATE) [Concomitant]
  15. NORVASC (AMLODIPINE BESILATE) [Concomitant]

REACTIONS (4)
  - Pulmonary oedema [None]
  - Cardiac failure congestive [None]
  - Thrombocytopenia [None]
  - Anaemia [None]
